FAERS Safety Report 21541096 (Version 3)
Quarter: 2022Q4

REPORT INFORMATION
  Report Type: Spontaneous
  Country: DE (occurrence: DE)
  Receive Date: 20221102
  Receipt Date: 20221215
  Transmission Date: 20230113
  Serious: Yes (Life-Threatening)
  Sender: FDA-Public Use
  Company Number: DE-NOVARTISPH-NVSC2022DE243801

PATIENT
  Age: 77 Year

DRUGS (40)
  1. DEXAMETHASONE [Suspect]
     Active Substance: DEXAMETHASONE
     Indication: Plasma cell myeloma refractory
     Dosage: 20 MG, OTHER D1,D2
     Route: 065
     Dates: start: 20211206, end: 20211207
  2. DEXAMETHASONE [Suspect]
     Active Substance: DEXAMETHASONE
     Dosage: 10 MG, OTHER D8,D9
     Route: 065
     Dates: start: 20220110, end: 20220111
  3. DEXAMETHASONE [Suspect]
     Active Substance: DEXAMETHASONE
     Dosage: 10 MG, OTHER D1,D2,D8,D9
     Route: 065
     Dates: start: 20220131, end: 20220208
  4. DEXAMETHASONE [Suspect]
     Active Substance: DEXAMETHASONE
     Dosage: 10 MG, OTHER D1,D2,D8,D9
     Route: 065
     Dates: start: 20220228, end: 20220308
  5. DEXAMETHASONE [Suspect]
     Active Substance: DEXAMETHASONE
     Dosage: 10 MG, OTHER D1,D2
     Route: 065
     Dates: start: 20220328, end: 20220529
  6. DEXAMETHASONE [Suspect]
     Active Substance: DEXAMETHASONE
     Dosage: 10 MG, OTHER D1
     Route: 065
     Dates: start: 20220621, end: 20220621
  7. DEXAMETHASONE [Suspect]
     Active Substance: DEXAMETHASONE
     Dosage: 10 MG, OTHER D1
     Route: 065
     Dates: start: 20221005, end: 20221005
  8. DEXAMETHASONE [Suspect]
     Active Substance: DEXAMETHASONE
     Dosage: 10 MG, OTHER D8,D9
     Route: 065
     Dates: start: 20221012, end: 20221013
  9. ISATUXIMAB [Suspect]
     Active Substance: ISATUXIMAB
     Indication: Plasma cell myeloma refractory
     Dosage: 800 MG, QW
     Route: 065
     Dates: start: 20211206, end: 20211206
  10. ISATUXIMAB [Suspect]
     Active Substance: ISATUXIMAB
     Dosage: 800 MG, QW
     Route: 065
     Dates: start: 20220110, end: 20220110
  11. ISATUXIMAB [Suspect]
     Active Substance: ISATUXIMAB
     Dosage: 800 MG, OTHER D1
     Route: 065
     Dates: start: 20220131, end: 20220131
  12. ISATUXIMAB [Suspect]
     Active Substance: ISATUXIMAB
     Dosage: 800 MG, OTHER D1
     Route: 065
     Dates: start: 20220228, end: 20220228
  13. ISATUXIMAB [Suspect]
     Active Substance: ISATUXIMAB
     Dosage: 800 MG, OTHER D1
     Route: 065
     Dates: start: 20220328, end: 20220328
  14. ISATUXIMAB [Suspect]
     Active Substance: ISATUXIMAB
     Dosage: 800 MG, OTHER D1
     Route: 065
     Dates: start: 20220621, end: 20220621
  15. ISATUXIMAB [Suspect]
     Active Substance: ISATUXIMAB
     Dosage: 400 MG, OTHER D1
     Route: 065
     Dates: start: 20221005
  16. CARFILZOMIB [Suspect]
     Active Substance: CARFILZOMIB
     Indication: Plasma cell myeloma refractory
     Dosage: 37 MG, OTHER D1, D2
     Route: 065
     Dates: start: 20211206, end: 20211207
  17. CARFILZOMIB [Suspect]
     Active Substance: CARFILZOMIB
     Dosage: 103 MG, OTHER D8,D9
     Route: 065
     Dates: start: 20220110, end: 20220111
  18. CARFILZOMIB [Suspect]
     Active Substance: CARFILZOMIB
     Dosage: 103 MG, OTHER D1,D2,D8,D9
     Route: 065
     Dates: start: 20220131, end: 20220208
  19. CARFILZOMIB [Suspect]
     Active Substance: CARFILZOMIB
     Dosage: 103 MG, OTHER D1,D2,D8,D9
     Route: 065
     Dates: start: 20220228, end: 20220308
  20. CARFILZOMIB [Suspect]
     Active Substance: CARFILZOMIB
     Dosage: 103 MG, OTHER D1,D2
     Route: 065
     Dates: start: 20220328, end: 20220329
  21. CARFILZOMIB [Suspect]
     Active Substance: CARFILZOMIB
     Dosage: 81 MG, OTHER D1
     Route: 065
     Dates: start: 20220621, end: 20220621
  22. CARFILZOMIB [Suspect]
     Active Substance: CARFILZOMIB
     Dosage: 81 MG, OTHER D1,D2
     Route: 065
     Dates: start: 20220621, end: 20220622
  23. CARFILZOMIB [Suspect]
     Active Substance: CARFILZOMIB
     Dosage: 77 MG, OTHER D1
     Route: 065
     Dates: start: 20221005, end: 20221005
  24. CARFILZOMIB [Suspect]
     Active Substance: CARFILZOMIB
     Dosage: 77 MG, OTHER D8, D9
     Route: 065
     Dates: start: 20221012, end: 20221013
  25. LISINOPRIL [Concomitant]
     Active Substance: LISINOPRIL
     Indication: Hypertension
     Dosage: UNK
     Route: 065
     Dates: start: 2017
  26. CHOLECALCIFEROL [Concomitant]
     Active Substance: CHOLECALCIFEROL
     Indication: Osteopenia
     Dosage: UNK
     Route: 065
     Dates: start: 20220926
  27. LEVOTHYROXINE SODIUM [Concomitant]
     Active Substance: LEVOTHYROXINE SODIUM
     Indication: Hypothyroidism
     Dosage: UNK
     Route: 065
     Dates: start: 2017
  28. CALCIUM [Concomitant]
     Active Substance: CALCIUM
     Indication: Cholecystectomy
     Dosage: UNK
     Route: 065
     Dates: start: 20221011
  29. PREDNISOLONE [Concomitant]
     Active Substance: PREDNISOLONE
     Indication: Rheumatic disorder
     Dosage: UNK
     Route: 065
     Dates: start: 2018
  30. ACETAMINOPHEN [Concomitant]
     Active Substance: ACETAMINOPHEN
     Indication: Pyrexia
     Dosage: UNK, CYCLIC
     Route: 065
     Dates: start: 20211206
  31. ACETAMINOPHEN [Concomitant]
     Active Substance: ACETAMINOPHEN
     Indication: Prophylaxis
  32. DEFERASIROX [Concomitant]
     Active Substance: DEFERASIROX
     Indication: Product used for unknown indication
     Dosage: UNK
     Route: 065
     Dates: start: 20220914
  33. FOLIC ACID [Concomitant]
     Active Substance: FOLIC ACID
     Indication: Rheumatic disorder
     Dosage: UNK
     Route: 065
     Dates: start: 1992
  34. CLEMASTINE [Concomitant]
     Active Substance: CLEMASTINE
     Indication: Prophylaxis
     Dosage: UNK
     Route: 065
     Dates: start: 20211206
  35. METHOTREXATE [Concomitant]
     Active Substance: METHOTREXATE
     Indication: Rheumatic disorder
     Dosage: UNK
     Route: 065
     Dates: start: 1992
  36. VITAMIN B12 [Concomitant]
     Active Substance: CYANOCOBALAMIN
     Indication: Vitamin B12 deficiency
     Dosage: UNK
     Route: 065
     Dates: start: 20181130
  37. MONTELUKAST [Concomitant]
     Active Substance: MONTELUKAST SODIUM
     Indication: Rhinitis allergic
     Dosage: UNK
     Route: 065
     Dates: start: 20211130
  38. ONDANSETRON [Concomitant]
     Active Substance: ONDANSETRON
     Indication: Product used for unknown indication
     Dosage: UNK
     Route: 065
     Dates: start: 20220210
  39. METAMIZOLE [Concomitant]
     Active Substance: METAMIZOLE
     Indication: Intervertebral disc disorder
     Dosage: UNK
     Route: 065
     Dates: start: 2018
  40. EPOETIN ALFA [Concomitant]
     Active Substance: ERYTHROPOIETIN
     Indication: Anaemia
     Dosage: UNK
     Route: 065
     Dates: start: 20200717

REACTIONS (3)
  - Infusion related reaction [Recovered/Resolved]
  - Hypersensitivity [Recovered/Resolved]
  - Serum ferritin increased [Recovering/Resolving]

NARRATIVE: CASE EVENT DATE: 20221005
